FAERS Safety Report 18915476 (Version 3)
Quarter: 2021Q1

REPORT INFORMATION
  Report Type: Spontaneous
  Country: JP (occurrence: JP)
  Receive Date: 20210219
  Receipt Date: 20210326
  Transmission Date: 20210420
  Serious: Yes (Hospitalization, Other)
  Sender: FDA-Public Use
  Company Number: JP-GLAXOSMITHKLINE-JP2021041069

PATIENT
  Age: 95 Year
  Sex: Male
  Weight: 43.9 kg

DRUGS (15)
  1. LANSOPRAZOLE OD TABLET [Concomitant]
     Dosage: 15 MG, QD, AFTER BREAKFAST
  2. REQUIP [Suspect]
     Active Substance: ROPINIROLE HYDROCHLORIDE
     Dosage: 2 MG, QD, AFTER BREAKFAST
     Route: 048
     Dates: start: 20190401
  3. RESTAMIN KOWA CREAM 1% [Concomitant]
     Dosage: UNK, TWICE OR THRICE DAILY ON THE ABDOMEN
     Route: 061
  4. DICLOFENAC NA SUPPOSITORY [Concomitant]
     Dosage: 25 MG, INSERT 1 PIECE INTO THE ANUS AT ONSET OF LOW BACK PAIN
     Route: 061
  5. LAC?B GRANULAR POWDER N [Concomitant]
     Dosage: 1 G, BID, AFTER BREAKFAST AND DINNER
  6. MAGNESIUM OXIDE. [Concomitant]
     Active Substance: MAGNESIUM OXIDE
     Dosage: 1.2 G, QD, AFTER LUNCH
  7. ROPINIROLE. [Suspect]
     Active Substance: ROPINIROLE
     Dosage: 1 MG, BID, AFTER BREAKFAST AND DINNER, PULVERIZED
     Route: 048
  8. NOURIAST [Concomitant]
     Active Substance: ISTRADEFYLLINE
     Dosage: 20 MG, QD, AFTER BREAKFAST, PULVERIZED
  9. MEMANTINE HYDROCHLORIDE. [Concomitant]
     Active Substance: MEMANTINE HYDROCHLORIDE
     Dosage: 5 MG, QD, AFTER DINNER, PULVERIZED
  10. ISOSORBIDE DINITRATE TAPE [Concomitant]
     Dosage: 1 DF, QD, ON THE CHEST
     Route: 061
  11. NERISONA CREAM [Concomitant]
     Dosage: UNK, TWICE OR THRICE DAILY ON THE ABDOMEN
     Route: 061
  12. MAGMITT TABLET [Concomitant]
     Dosage: 660 MG, QD, AFTER DINNER
  13. LOXOPROFEN NA TAPE [Concomitant]
     Dosage: 2 DF, ON THE AFFECTED AREA
  14. NEODOPASTON COMBINATION TABLETS [Concomitant]
     Active Substance: CARBIDOPA\LEVODOPA
     Dosage: 1 DF, BID, AFTER BREAKFAST AND DINNER, PULVERIZED
  15. WHITE PETROLATUM [Concomitant]
     Active Substance: PETROLATUM
     Dosage: UNK, TWICE OR THRICE DAILY ON THE BACK AREA
     Route: 061

REACTIONS (7)
  - Femur fracture [Unknown]
  - Cerebral infarction [Unknown]
  - Arterial thrombosis [Unknown]
  - Rib fracture [Unknown]
  - Movement disorder [Unknown]
  - Dyslalia [Unknown]
  - Visual impairment [Unknown]

NARRATIVE: CASE EVENT DATE: 20210215
